FAERS Safety Report 26171513 (Version 1)
Quarter: 2025Q4

REPORT INFORMATION
  Report Type: Spontaneous
  Country: EU (occurrence: EU)
  Receive Date: 20251217
  Receipt Date: 20251217
  Transmission Date: 20260118
  Serious: Yes (Hospitalization)
  Sender: INSUD PHARMA
  Company Number: None

PATIENT
  Age: 37 Year
  Sex: Female

DRUGS (1)
  1. DROSPIRENONE [Suspect]
     Active Substance: DROSPIRENONE
     Indication: Oral contraception
     Dosage: UNA COMPRESSA AL GIORNO PER I PRIMI 24 GIORNI + 1COMPRESSA DI PLACEBO AL GIORNO PER ALTRI 4 GIORNI (
     Route: 048
     Dates: start: 20251028

REACTIONS (1)
  - Rash [Recovering/Resolving]

NARRATIVE: CASE EVENT DATE: 20251122
